FAERS Safety Report 26118681 (Version 1)
Quarter: 2025Q4

REPORT INFORMATION
  Report Type: Spontaneous
  Country: JP (occurrence: JP)
  Receive Date: 20251203
  Receipt Date: 20251203
  Transmission Date: 20260118
  Serious: Yes (Other)
  Sender: TAKEDA
  Company Number: JP-TAKEDA-2025TJP012304

PATIENT
  Age: 8 Decade

DRUGS (1)
  1. FRUZAQLA [Suspect]
     Active Substance: FRUQUINTINIB
     Indication: Colorectal cancer
     Dosage: UNK

REACTIONS (2)
  - Platelet count decreased [Unknown]
  - Disseminated intravascular coagulation [Unknown]
